FAERS Safety Report 25006248 (Version 1)
Quarter: 2025Q1

REPORT INFORMATION
  Report Type: Spontaneous
  Country: BR (occurrence: BR)
  Receive Date: 20250224
  Receipt Date: 20250224
  Transmission Date: 20250409
  Serious: Yes (Hospitalization, Other)
  Sender: AMGEN
  Company Number: BR-AMGEN-BRASP2025035778

PATIENT
  Age: 62 Year
  Sex: Female

DRUGS (2)
  1. ADALIMUMAB [Suspect]
     Active Substance: ADALIMUMAB
     Indication: Crohn^s disease
     Route: 065
  2. INFLIXIMAB [Suspect]
     Active Substance: INFLIXIMAB
     Indication: Crohn^s disease
     Route: 065

REACTIONS (6)
  - Febrile neutropenia [Recovering/Resolving]
  - Linear IgA disease [Recovered/Resolved]
  - Crohn^s disease [Unknown]
  - Agranulocytosis [Unknown]
  - Treatment failure [Unknown]
  - Genital herpes [Unknown]

NARRATIVE: CASE EVENT DATE: 20240101
